FAERS Safety Report 9351152 (Version 3)
Quarter: 2013Q3

REPORT INFORMATION
  Report Type: Spontaneous
  Country: US (occurrence: US)
  Receive Date: 20130617
  Receipt Date: 20130722
  Transmission Date: 20140515
  Serious: No
  Sender: FDA-Public Use
  Company Number: US-009507513-1306USA002789

PATIENT
  Age: 12 Year
  Sex: Female

DRUGS (1)
  1. COPPERTONE KIDS PURE AND SIMPLE SPF-50 [Suspect]
     Indication: PRODUCT USED FOR UNKNOWN INDICATION
     Dosage: UNK, UNKNOWN
     Route: 061
     Dates: start: 201305

REACTIONS (4)
  - Sunburn [Unknown]
  - Blister [Unknown]
  - Scar [Unknown]
  - Expired drug administered [Unknown]
